FAERS Safety Report 8380097-7 (Version None)
Quarter: 2012Q2

REPORT INFORMATION
  Report Type: 
  Country: None (occurrence: None)
  Receive Date: 20120523
  Receipt Date: 20120509
  Transmission Date: 20120825
  Serious: Yes (Other)
  Sender: FDA-Public Use
  Company Number: US-GLAXOSMITHKLINE-Z0015523A

PATIENT
  Age: 57 Year
  Sex: Male
  Weight: 109 kg

DRUGS (3)
  1. MULTI-VITAMINS [Concomitant]
     Indication: SUPPLEMENTATION THERAPY
     Dosage: 2TAB PER DAY
     Route: 048
  2. TYLENOL [Concomitant]
     Indication: PAIN
     Dosage: 500MG AS REQUIRED
     Route: 048
  3. PAZOPANIB [Suspect]
     Indication: RENAL CELL CARCINOMA
     Dosage: 600MG PER DAY
     Route: 048
     Dates: start: 20120413

REACTIONS (1)
  - POLYCYTHAEMIA [None]
